FAERS Safety Report 8186564-3 (Version None)
Quarter: 2012Q1

REPORT INFORMATION
  Report Type: 
  Country: None (occurrence: None)
  Receive Date: 20120306
  Receipt Date: 20120227
  Transmission Date: 20120608
  Serious: Yes (Other)
  Sender: FDA-Public Use
  Company Number: CA-COVIDIEN/TYCO HEALTHCARE/MALLINCKRODT-T201200757

PATIENT
  Age: 69 Year
  Sex: Male

DRUGS (1)
  1. OPTIRAY 160 [Suspect]
     Indication: PRODUCT USED FOR UNKNOWN INDICATION
     Dosage: 80 ML, UNK
     Route: 065

REACTIONS (2)
  - URTICARIA [None]
  - DYSPHAGIA [None]
